FAERS Safety Report 10044418 (Version 1)
Quarter: 2014Q1

REPORT INFORMATION
  Report Type: Spontaneous
  Country: FR (occurrence: FR)
  Receive Date: 20140328
  Receipt Date: 20140328
  Transmission Date: 20141002
  Serious: Yes (Hospitalization, Other)
  Sender: FDA-Public Use
  Company Number: FR-JNJFOC-20140313105

PATIENT
  Sex: 0

DRUGS (3)
  1. GALANTAMINE [Suspect]
     Indication: DEMENTIA ALZHEIMER^S TYPE
     Route: 065
  2. DONEPEZIL [Suspect]
     Indication: DEMENTIA ALZHEIMER^S TYPE
     Route: 065
  3. RIVASTIGMINE [Suspect]
     Indication: DEMENTIA ALZHEIMER^S TYPE
     Route: 065

REACTIONS (6)
  - Dementia Alzheimer^s type [Unknown]
  - Fall [Unknown]
  - Investigation [Unknown]
  - Body mass index decreased [Unknown]
  - Treatment noncompliance [Unknown]
  - Adverse event [Unknown]
